FAERS Safety Report 23326738 (Version 2)
Quarter: 2024Q1

REPORT INFORMATION
  Report Type: Spontaneous
  Country: US (occurrence: US)
  Receive Date: 20231221
  Receipt Date: 20240207
  Transmission Date: 20240409
  Serious: No
  Sender: FDA-Public Use
  Company Number: US-PFIZER INC-PV202300201730

PATIENT
  Age: 92 Year
  Sex: Female

DRUGS (1)
  1. IBRANCE [Suspect]
     Active Substance: PALBOCICLIB
     Dosage: ONE TABLET DAILY ON DAYS 1-14 OF A 28 DAY CYCLE
     Route: 048

REACTIONS (2)
  - Hypoacusis [Unknown]
  - Off label use [Unknown]
